FAERS Safety Report 13423732 (Version 2)
Quarter: 2017Q2

REPORT INFORMATION
  Report Type: Spontaneous
  Country: GB (occurrence: GB)
  Receive Date: 20170410
  Receipt Date: 20170426
  Transmission Date: 20170830
  Serious: Yes (Death, Other)
  Sender: FDA-Public Use
  Company Number: GB-PFIZER INC-2017148528

PATIENT
  Sex: Female

DRUGS (11)
  1. CITALOPRAM [Concomitant]
     Active Substance: CITALOPRAM HYDROBROMIDE
  2. HYDROXOCOBALAMIN [Concomitant]
     Active Substance: HYDROXOCOBALAMIN
  3. OXYGEN. [Concomitant]
     Active Substance: OXYGEN
     Indication: GENERALISED TONIC-CLONIC SEIZURE
     Dates: start: 20160125
  4. ONDANSETRON [Concomitant]
     Active Substance: ONDANSETRON
     Indication: VOMITING
  5. ZEROBASE [Concomitant]
  6. EUMOVATE [Concomitant]
     Active Substance: CLOBETASONE BUTYRATE
  7. PRO D3 [Concomitant]
  8. FOLIC ACID. [Concomitant]
     Active Substance: FOLIC ACID
  9. ADCAL D3 [Concomitant]
     Active Substance: CALCIUM CARBONATE\CHOLECALCIFEROL
  10. DIAZEPAM. [Concomitant]
     Active Substance: DIAZEPAM
     Indication: SEIZURE
     Dosage: 15 MG (10MG WHICH HAD EXTRAVASATED SUBCUTANEOUSLY AND WAS GIVEN ANOTHER 5MG ON ANOTHER CANNULATED S)
     Route: 058
     Dates: start: 20160125
  11. PHENYTOIN SODIUM. [Suspect]
     Active Substance: PHENYTOIN SODIUM
     Indication: STATUS EPILEPTICUS
     Dosage: 10G IN SALINE 50ML. ACTUAL DOSE GIVEN TO PATIENT IS UNCLEAR.
     Route: 042
     Dates: start: 20160125

REACTIONS (6)
  - Toxicity to various agents [Fatal]
  - Drug prescribing error [Fatal]
  - Generalised tonic-clonic seizure [Fatal]
  - Product preparation error [Fatal]
  - Cardio-respiratory arrest [Fatal]
  - Bradycardia [Fatal]

NARRATIVE: CASE EVENT DATE: 20160125
